FAERS Safety Report 9358227 (Version 1)
Quarter: 2013Q2

REPORT INFORMATION
  Report Type: Spontaneous
  Country: US (occurrence: US)
  Receive Date: 20130620
  Receipt Date: 20130620
  Transmission Date: 20140414
  Serious: No
  Sender: FDA-Public Use
  Company Number: US-GALDERMA-US13001147

PATIENT
  Age: 79 Year
  Sex: Female
  Weight: 51 kg

DRUGS (1)
  1. ADAPALENE [Suspect]
     Indication: PHOTODERMATOSIS
     Route: 061
     Dates: start: 20130204

REACTIONS (2)
  - Facial pain [Not Recovered/Not Resolved]
  - Off label use [Not Recovered/Not Resolved]
